FAERS Safety Report 17388749 (Version 9)
Quarter: 2021Q2

REPORT INFORMATION
  Report Type: Report from Study
  Country: US (occurrence: US)
  Receive Date: 20200206
  Receipt Date: 20210414
  Transmission Date: 20210716
  Serious: Yes (Hospitalization, Other)
  Sender: FDA-Public Use
  Company Number: US-SHIRE-US202004553

PATIENT
  Sex: Female
  Weight: 48 kg

DRUGS (7)
  1. HUMAN IMMUNOGLOBULIN; HYALURONIDASE [Suspect]
     Active Substance: HUMAN IMMUNOGLOBULIN G\HYALURONIDASE RECOMBINANT HUMAN
     Indication: IMMUNODEFICIENCY
     Dosage: 30 GRAM, Q4WEEKS
     Route: 058
     Dates: start: 20181120
  2. HUMAN IMMUNOGLOBULIN; HYALURONIDASE [Suspect]
     Active Substance: HUMAN IMMUNOGLOBULIN G\HYALURONIDASE RECOMBINANT HUMAN
     Indication: SELECTIVE IGG SUBCLASS DEFICIENCY
  3. ACETAMINOPHEN. [Concomitant]
     Active Substance: ACETAMINOPHEN
     Dosage: UNK
     Route: 065
  4. NORMAL SALINE [Concomitant]
     Active Substance: SODIUM CHLORIDE
     Dosage: UNK
     Route: 065
  5. EPINEPHRINE. [Concomitant]
     Active Substance: EPINEPHRINE
     Dosage: UNK
     Route: 065
  6. DIPHENHYDRAMINE. [Concomitant]
     Active Substance: DIPHENHYDRAMINE
     Dosage: UNK
     Route: 065
  7. LIDOCAINE. [Concomitant]
     Active Substance: LIDOCAINE
     Dosage: UNK
     Route: 065

REACTIONS (9)
  - Drug hypersensitivity [Unknown]
  - Nausea [Unknown]
  - Upper respiratory tract infection [Unknown]
  - Candida infection [Unknown]
  - Abdominal discomfort [Unknown]
  - Fluid intake reduced [Unknown]
  - Enteritis infectious [Unknown]
  - Gastrointestinal bacterial overgrowth [Unknown]
  - Eye infection [Unknown]
